FAERS Safety Report 16134556 (Version 2)
Quarter: 2019Q2

REPORT INFORMATION
  Report Type: Spontaneous
  Country: US (occurrence: US)
  Receive Date: 20190329
  Receipt Date: 20190503
  Transmission Date: 20190711
  Serious: Yes (Hospitalization)
  Sender: FDA-Public Use
  Company Number: US-VERTEX PHARMACEUTICALS-2019-002589

PATIENT
  Age: 12 Year
  Sex: Male

DRUGS (37)
  1. MEPHYTON [Concomitant]
     Active Substance: PHYTONADIONE
     Dosage: 1 DOSAGE FORM, MWF
     Route: 048
     Dates: start: 20190318
  2. FLORASTOR                          /00079701/ [Concomitant]
     Dosage: 2 DOSAGE FORM, TID
     Route: 048
     Dates: start: 20190211
  3. URSODIOL. [Concomitant]
     Active Substance: URSODIOL
     Dosage: 1 DOSAGE FORM, BID
     Route: 048
     Dates: start: 20181115
  4. ENSURE [Concomitant]
     Active Substance: AMINO ACIDS\DEXTROSE\ELECTROLYTES NOS\SOYBEAN OIL\VITAMINS
     Dosage: 8 OZ, QD
     Route: 048
  5. ALLEGRA ALLERGY [Concomitant]
     Active Substance: FEXOFENADINE HYDROCHLORIDE
     Dosage: 1 TEASPOONFUL, BID
     Route: 048
  6. LANSOPRAZOLE. [Concomitant]
     Active Substance: LANSOPRAZOLE
     Dosage: 1 DOSAGE FORM, QD
     Route: 048
     Dates: start: 20190320
  7. MELATONIN [Concomitant]
     Active Substance: MELATONIN
     Dosage: 1 DOSAGE FORM, QD
     Route: 048
     Dates: start: 20180831
  8. PEDIASURE                          /07459601/ [Concomitant]
     Dosage: 1 CAN, BID
     Route: 048
  9. BENEFIBER                          /00677201/ [Concomitant]
     Active Substance: ICODEXTRIN
     Dosage: UNK, QD AS NEEDED
     Route: 048
  10. LEVALBUTEROL                       /01419301/ [Concomitant]
     Active Substance: LEVALBUTEROL
     Indication: COUGH
     Dosage: 1 VIAL (0.63/3 MG/ML), BID
     Route: 055
     Dates: start: 20190301
  11. ADVAIR HFA [Concomitant]
     Active Substance: FLUTICASONE PROPIONATE\SALMETEROL XINAFOATE
     Dosage: 2 PUFFS (115-21 MCG/ ACTUATION), BID
     Route: 055
  12. DEVI [Concomitant]
  13. CLOTRIMAZOLE. [Concomitant]
     Active Substance: CLOTRIMAZOLE
     Dosage: UNK, PRN
     Route: 061
     Dates: start: 20181017
  14. CHOLECALCIFEROL [Concomitant]
     Active Substance: CHOLECALCIFEROL
     Dosage: 2 MILLILITER, QD
     Route: 048
     Dates: start: 20171128
  15. FOCALIN [Concomitant]
     Active Substance: DEXMETHYLPHENIDATE HYDROCHLORIDE
  16. SYMDEKO [Suspect]
     Active Substance: IVACAFTOR\TEZACAFTOR
     Indication: CYSTIC FIBROSIS
     Dosage: 100MG TEZACAFTOR/150MG IVACAFTOR; 150MG IVACAFTOR, BID
     Route: 048
     Dates: start: 20190110
  17. CAYSTON [Concomitant]
     Active Substance: AZTREONAM
  18. AZTREONAM LYSINE [Concomitant]
     Active Substance: AZTREONAM LYSINE
     Dosage: 75 MG, TID
     Route: 055
     Dates: start: 20190322
  19. HYDROCORTISONE. [Concomitant]
     Active Substance: HYDROCORTISONE
     Dosage: UNK, QD
     Route: 061
     Dates: start: 20181017
  20. SODIUM CHLORIDE. [Concomitant]
     Active Substance: SODIUM CHLORIDE
     Dosage: 4 MILLILITER, INHALE, QID
     Route: 055
  21. FERROUS SULFATE. [Concomitant]
     Active Substance: FERROUS SULFATE
     Dosage: 1 MILLILITER, QD
     Route: 048
     Dates: start: 20171128
  22. INSULIN ASPART [Concomitant]
     Active Substance: INSULIN ASPART
     Dosage: UNK
     Dates: start: 20140424
  23. DOXYCYCLINE. [Concomitant]
     Active Substance: DOXYCYCLINE
     Dosage: HALF DOSAGE FORM, BID
     Route: 048
     Dates: start: 20190409
  24. CREON [Concomitant]
     Active Substance: PANCRELIPASE AMYLASE\PANCRELIPASE LIPASE\PANCRELIPASE PROTEASE
     Dosage: 3 DOSAGE FORM WITH MEALS
     Dates: start: 20190305
  25. CREON [Concomitant]
     Active Substance: PANCRELIPASE AMYLASE\PANCRELIPASE LIPASE\PANCRELIPASE PROTEASE
     Dosage: 1 DOSAGE FORM WITH SNACKS
     Dates: start: 20190305
  26. IPRATROPIUM [Concomitant]
     Active Substance: IPRATROPIUM
     Dosage: 2 SPRAY, BID
     Route: 045
     Dates: start: 20180918
  27. PEPTAMEN [Concomitant]
     Dosage: 1250 MILLILITER, QD
  28. CREON [Concomitant]
     Active Substance: PANCRELIPASE AMYLASE\PANCRELIPASE LIPASE\PANCRELIPASE PROTEASE
     Dosage: 5 DOSAGE FORM WITH OVERNIGHT FEEDS
     Route: 048
     Dates: start: 20190305
  29. CYPROHEPTADINE. [Concomitant]
     Active Substance: CYPROHEPTADINE
     Dosage: 5 MILLILITER, QID
     Route: 048
     Dates: start: 20180612
  30. MIRALAX [Concomitant]
     Active Substance: POLYETHYLENE GLYCOL 3350
     Dosage: 1 CAPFUL, QD
     Route: 048
     Dates: start: 20190417
  31. NYSTATIN. [Concomitant]
     Active Substance: NYSTATIN
     Dosage: 100000 UNITS/G, PRN
     Route: 061
  32. INSULIN NPH                        /01223208/ [Concomitant]
     Active Substance: INSULIN BEEF
     Dosage: 6 UNIT, QD
     Route: 058
     Dates: start: 20190325
  33. VITAMIN E                          /00110501/ [Concomitant]
     Active Substance: TOCOPHEROL
     Dosage: 12 MILLILITER, QD VIA G-TUBE
     Route: 048
  34. AZITHROMYCIN ANHYDROUS. [Concomitant]
     Active Substance: AZITHROMYCIN ANHYDROUS
     Dosage: 1 DOSAGE FORM, MWF
     Route: 048
     Dates: start: 20180824
  35. PEDIALYTE                          /02025801/ [Concomitant]
     Dosage: PLACE 1250 ML IN G-TUBE, QD
     Route: 048
  36. CICLESONIDE [Concomitant]
     Active Substance: CICLESONIDE
     Dosage: 1 PUFF (160 MCG/ ACT), BID
     Route: 048
     Dates: start: 20180611
  37. DORNASE ALFA. [Concomitant]
     Active Substance: DORNASE ALFA
     Dosage: 2.5 MILLILITER, INHALE, QD
     Route: 048

REACTIONS (1)
  - Infective pulmonary exacerbation of cystic fibrosis [Recovered/Resolved]

NARRATIVE: CASE EVENT DATE: 20190301
